FAERS Safety Report 10206683 (Version 1)
Quarter: 2014Q2

REPORT INFORMATION
  Report Type: Spontaneous
  Country: IE (occurrence: IE)
  Receive Date: 20140530
  Receipt Date: 20140530
  Transmission Date: 20141212
  Serious: Yes (Death)
  Sender: FDA-Public Use
  Company Number: IE-AMGEN-IRLSP2014039543

PATIENT
  Age: 90 Year
  Sex: Male

DRUGS (9)
  1. ARANESP [Suspect]
     Indication: NEPHROPATHY
     Dosage: 30 MUG, Q2WK
     Route: 058
     Dates: start: 20111101
  2. LIPITOR [Concomitant]
     Route: 065
  3. STILNOCT [Concomitant]
     Route: 065
  4. DIOVAN [Concomitant]
     Route: 065
  5. ALPHA                              /00169801/ [Concomitant]
     Route: 065
  6. ALLOPURINOL [Concomitant]
     Route: 065
  7. PHOSEX [Concomitant]
     Route: 065
  8. ASPIRIN [Concomitant]
     Route: 065
  9. BURINEX [Concomitant]
     Route: 065

REACTIONS (1)
  - Death [Fatal]
